FAERS Safety Report 7904939-1 (Version None)
Quarter: 2011Q4

REPORT INFORMATION
  Report Type: 
  Country: None (occurrence: None)
  Receive Date: 20111109
  Receipt Date: 20111102
  Transmission Date: 20120403
  Serious: Yes (Hospitalization)
  Sender: FDA-Public Use
  Company Number: PHEH2011US008735

PATIENT
  Sex: Female

DRUGS (12)
  1. VYTORIN [Concomitant]
     Dosage: UNK
  2. CALCIUM CARBONATE [Concomitant]
     Dosage: 600 UNK, UNK
  3. NEXIUM [Concomitant]
     Dosage: 40 MG, UNK
  4. VALTREX [Concomitant]
     Dosage: 1 G, UNK
  5. VASOTEC [Concomitant]
     Dosage: 2.5 MG, UNK
  6. MULTI-VITAMINS [Concomitant]
  7. FISH OIL [Concomitant]
  8. JANUVIA [Concomitant]
     Dosage: 25 MG, UNK
  9. VESICARE [Concomitant]
     Dosage: 5 MG, UNK
  10. VISION CLEAR SOLUTION [Concomitant]
  11. EXJADE [Suspect]
     Dosage: 500 MG, BID, (DISSOLVE 1 TAB IN LIQUID UNTIL SUSPENSION)
     Route: 048
  12. TOPROL-XL [Concomitant]

REACTIONS (1)
  - SEPSIS [None]
